FAERS Safety Report 17191049 (Version 2)
Quarter: 2020Q1

REPORT INFORMATION
  Report Type: Spontaneous
  Country: PT (occurrence: PT)
  Receive Date: 20191223
  Receipt Date: 20200323
  Transmission Date: 20200409
  Serious: Yes (Hospitalization, Other)
  Sender: FDA-Public Use
  Company Number: NVSC2019PT076250

PATIENT
  Age: 67 Year
  Sex: Female

DRUGS (3)
  1. ALLOPURINOL. [Suspect]
     Active Substance: ALLOPURINOL
     Indication: GOUT
     Dosage: 150 MG, QD
     Route: 048
  2. SIMVASTATIN. [Suspect]
     Active Substance: SIMVASTATIN
     Indication: HYPERCHOLESTEROLAEMIA
     Dosage: 20 MG, QD
     Route: 048
  3. ATENOLOL AND CHLORTHALIDONE [Concomitant]
     Active Substance: ATENOLOL\CHLORTHALIDONE
     Indication: HYPERTENSION
     Dosage: 100 MG, QD (100/25 MG, QD)
     Route: 065

REACTIONS (9)
  - Muscular weakness [Recovering/Resolving]
  - Hepatic steatosis [Recovering/Resolving]
  - Thyroid mass [Recovering/Resolving]
  - Asthenia [Recovering/Resolving]
  - Myopathy [Recovering/Resolving]
  - Quadriparesis [Recovering/Resolving]
  - Myalgia [Recovering/Resolving]
  - Erythema [Recovering/Resolving]
  - Immune-mediated myositis [Recovering/Resolving]
